FAERS Safety Report 11091533 (Version 4)
Quarter: 2015Q3

REPORT INFORMATION
  Report Type: Spontaneous
  Country: US (occurrence: US)
  Receive Date: 20150505
  Receipt Date: 20150702
  Transmission Date: 20151125
  Serious: Yes (Hospitalization, Disabling, Other)
  Sender: FDA-Public Use
  Company Number: US-009507513-1112USA00007

PATIENT
  Sex: Female
  Weight: 58.5 kg

DRUGS (8)
  1. ALENDRONATE SODIUM. [Suspect]
     Active Substance: ALENDRONATE SODIUM
     Indication: OSTEOPENIA
  2. ALENDRONATE SODIUM. [Suspect]
     Active Substance: ALENDRONATE SODIUM
     Indication: OSTEOPOROSIS
     Dosage: 70 MG, UNK
     Route: 048
     Dates: start: 20080224, end: 20091128
  3. LIPITOR [Concomitant]
     Active Substance: ATORVASTATIN CALCIUM
     Indication: BLOOD CHOLESTEROL INCREASED
     Dosage: UNK
     Dates: start: 2000
  4. ALENDRONATE SODIUM. [Suspect]
     Active Substance: ALENDRONATE SODIUM
     Indication: OSTEOPOROSIS POSTMENOPAUSAL
     Dosage: 70 MG, UNK
     Route: 048
     Dates: start: 2003, end: 200912
  5. ALENDRONATE SODIUM. [Suspect]
     Active Substance: ALENDRONATE SODIUM
     Indication: OSTEOPENIA
  6. FOSAMAX [Suspect]
     Active Substance: ALENDRONATE SODIUM
     Indication: OSTEOPOROSIS POSTMENOPAUSAL
     Dosage: 70 MG, QW
     Route: 048
     Dates: start: 20030604, end: 20091201
  7. FOSAMAX [Suspect]
     Active Substance: ALENDRONATE SODIUM
     Indication: OSTEOPENIA
  8. PREDNISONE. [Concomitant]
     Active Substance: PREDNISONE
     Indication: INFLAMMATION
     Dosage: UNK
     Dates: start: 1999, end: 2010

REACTIONS (22)
  - Cholecystectomy [Unknown]
  - Vitamin D deficiency [Unknown]
  - Dyspnoea [Unknown]
  - Compression fracture [Unknown]
  - Diverticulum [Unknown]
  - Drug ineffective [Unknown]
  - Constipation [Unknown]
  - Femur fracture [Recovering/Resolving]
  - Sciatica [Unknown]
  - Haemorrhoids [Unknown]
  - Temporomandibular joint syndrome [Unknown]
  - Rectocele [Unknown]
  - Intervertebral disc protrusion [Unknown]
  - Spinal fusion surgery [Unknown]
  - Poor dental condition [Unknown]
  - Spinal compression fracture [Unknown]
  - Arthritis [Unknown]
  - Intramedullary rod insertion [Unknown]
  - Back pain [Unknown]
  - Intervertebral disc protrusion [Unknown]
  - Chondrocalcinosis [Unknown]
  - Spinal compression fracture [Unknown]

NARRATIVE: CASE EVENT DATE: 2006
